FAERS Safety Report 7469476-X (Version None)
Quarter: 2011Q2

REPORT INFORMATION
  Report Type: 
  Country: None (occurrence: None)
  Receive Date: 20110506
  Receipt Date: 20110506
  Transmission Date: 20111010
  Serious: No
  Sender: FDA-Public Use
  Company Number: None

PATIENT
  Age: 40 Year
  Sex: Female
  Weight: 65.7716 kg

DRUGS (1)
  1. LISINOPRIL [Suspect]
     Indication: HYPERTENSION
     Dosage: 5MG 1/DAY MOUTH; 2.5MG 1/DAY MOUTH
     Route: 048
     Dates: start: 20110305

REACTIONS (5)
  - PALPITATIONS [None]
  - MUSCLE SPASMS [None]
  - CHEST PAIN [None]
  - CHEST DISCOMFORT [None]
  - DIZZINESS [None]
